FAERS Safety Report 4851857-1 (Version None)
Quarter: 2005Q4

REPORT INFORMATION
  Report Type: 
  Country: None (occurrence: None)
  Receive Date: 20051209
  Receipt Date: 20051202
  Transmission Date: 20060501
  Serious: Yes (Hospitalization)
  Sender: FDA-Public Use
  Company Number: 163-20785-05110150

PATIENT
  Age: 84 Year
  Sex: Male
  Weight: 67.1 kg

DRUGS (8)
  1. THALOMID [Suspect]
     Indication: THYROID CANCER METASTATIC
     Dosage: 200 MG, DAILY, ORAL
     Route: 048
     Dates: start: 20050910, end: 20051031
  2. LASIX [Concomitant]
  3. SYNTHROID [Concomitant]
  4. FLOMAX [Concomitant]
  5. K-DUR 10 [Concomitant]
  6. TWOCAL HN (SOLUTIONS FOR PARENTERAL NUTRITION) [Concomitant]
  7. DARVOCET-N (PROPACET) [Concomitant]
  8. CHLORTHALIDONE [Concomitant]

REACTIONS (17)
  - BLOOD GLUCOSE INCREASED [None]
  - BLOOD POTASSIUM DECREASED [None]
  - BLOOD UREA INCREASED [None]
  - CARBON DIOXIDE INCREASED [None]
  - CONSTIPATION [None]
  - DIARRHOEA [None]
  - DISEASE PROGRESSION [None]
  - DRUG EFFECT DECREASED [None]
  - DYSPNOEA [None]
  - GASTROOESOPHAGEAL REFLUX DISEASE [None]
  - HAEMATOCRIT DECREASED [None]
  - HAEMOGLOBIN DECREASED [None]
  - HAEMOPTYSIS [None]
  - NEUROPATHY [None]
  - SOMNOLENCE [None]
  - URINARY RETENTION [None]
  - URINARY TRACT INFECTION [None]
